FAERS Safety Report 5788164-9 (Version None)
Quarter: 2008Q2

REPORT INFORMATION
  Report Type: 
  Country: None (occurrence: None)
  Receive Date: 20080625
  Receipt Date: 20080530
  Transmission Date: 20081010
  Serious: No
  Sender: FDA-Public Use
  Company Number: US-BOEHRINGER INGELHEIM GMBH, GERMANY-2008-BP-08479BP

PATIENT
  Sex: Female

DRUGS (3)
  1. CATAPRES-TTS-1 [Suspect]
     Indication: HYPERTENSION
     Route: 061
     Dates: start: 20080502
  2. LISINOPRIL [Concomitant]
     Indication: HYPERTENSION
  3. BISOPROLOL FUMARATE [Concomitant]
     Indication: HYPERTENSION

REACTIONS (6)
  - DEPRESSION [None]
  - FATIGUE [None]
  - HEADACHE [None]
  - MUSCLE TWITCHING [None]
  - SINUS HEADACHE [None]
  - VISION BLURRED [None]
